FAERS Safety Report 6836687-3 (Version None)
Quarter: 2010Q3

REPORT INFORMATION
  Report Type: 
  Country: None (occurrence: None)
  Receive Date: 20100713
  Receipt Date: 20100630
  Transmission Date: 20110219
  Serious: Yes (Death, Hospitalization, Other)
  Sender: FDA-Public Use
  Company Number: PHHY2010JP43353

PATIENT
  Sex: Male

DRUGS (8)
  1. ICL670A ICL+DISTAB [Suspect]
     Indication: IRON OVERLOAD
     Dosage: 1250 MG,DAILY
     Route: 048
     Dates: start: 20090417, end: 20090519
  2. ICL670A ICL+DISTAB [Suspect]
     Dosage: 625 MG,DAILY
     Route: 048
     Dates: start: 20090520, end: 20090731
  3. NEORAL [Suspect]
     Indication: APLASTIC ANAEMIA
     Dosage: 200 MG, DAILY
     Route: 048
     Dates: start: 20090101, end: 20090508
  4. NEORAL [Suspect]
     Dosage: 150 MG,DAILY
     Route: 048
     Dates: start: 20090509, end: 20090731
  5. PREDONINE [Concomitant]
     Indication: APLASTIC ANAEMIA
     Dosage: 20 MG, UNK
     Route: 048
     Dates: start: 20090225, end: 20090731
  6. LENDORMIN [Concomitant]
     Indication: MYOCARDIAL INFARCTION
     Dosage: 0.25 MG, UNK
     Route: 048
     Dates: start: 20090102, end: 20090730
  7. COTRIM [Concomitant]
     Indication: MYOCARDIAL INFARCTION
     Dosage: 1 DF, UNK
     Route: 048
     Dates: start: 20090305, end: 20090731
  8. BLOOD TRANSFUSION [Concomitant]
     Dosage: UNK
     Dates: start: 20090115

REACTIONS (9)
  - ANAEMIA [None]
  - BLOOD CREATININE INCREASED [None]
  - BLOOD UREA INCREASED [None]
  - LOSS OF CONSCIOUSNESS [None]
  - PLATELET COUNT DECREASED [None]
  - SEPSIS [None]
  - SEPTIC SHOCK [None]
  - SUBARACHNOID HAEMORRHAGE [None]
  - WHITE BLOOD CELL COUNT DECREASED [None]
